APPROVED DRUG PRODUCT: DIAZEPAM
Active Ingredient: DIAZEPAM
Strength: 50MG/10ML (5MG/ML)
Dosage Form/Route: INJECTABLE;INJECTION
Application: A211998 | Product #001 | TE Code: AP
Applicant: REGCON HOLDINGS LLC
Approved: Dec 26, 2019 | RLD: No | RS: No | Type: RX